FAERS Safety Report 9791351 (Version 1)
Quarter: 2014Q1

REPORT INFORMATION
  Report Type: Report from Study
  Country: US (occurrence: US)
  Receive Date: 20140101
  Receipt Date: 20140101
  Transmission Date: 20141002
  Serious: Yes (Other)
  Sender: FDA-Public Use
  Company Number: US-ROCHE-1312714

PATIENT
  Sex: Male
  Weight: 83.54 kg

DRUGS (12)
  1. AVASTIN [Suspect]
     Indication: LUNG CANCER METASTATIC
     Dosage: 15 MG/KG
     Route: 042
  2. DEXAMETHASONE [Concomitant]
     Route: 042
  3. DIPHENHYDRAMINE HYDROCHLORIDE [Concomitant]
     Route: 042
  4. RANITIDINE [Concomitant]
     Route: 042
  5. LASIX [Concomitant]
     Route: 042
  6. NEULASTA [Concomitant]
     Route: 058
  7. TAXOL [Concomitant]
     Dosage: FOR 6 CYCLES
     Route: 042
  8. CARBOPLATIN [Concomitant]
     Route: 042
     Dates: start: 20130314
  9. CARBOPLATIN [Concomitant]
     Route: 042
     Dates: start: 20130130
  10. TRAMADOL HYDROCHLORIDE [Concomitant]
     Dosage: 37.5 - 325 MG
     Route: 048
  11. CARBOPLATIN [Concomitant]
  12. ACETAMINOPHEN [Concomitant]
     Dosage: 37.5 - 325 MG
     Route: 048

REACTIONS (8)
  - Metastases to central nervous system [Unknown]
  - Headache [Unknown]
  - Anxiety [Unknown]
  - Fatigue [Unknown]
  - Decreased appetite [Unknown]
  - Alopecia [Unknown]
  - Pain [Unknown]
  - Dyspnoea [Unknown]
